FAERS Safety Report 5583057-4 (Version None)
Quarter: 2008Q1

REPORT INFORMATION
  Report Type: 
  Country: None (occurrence: None)
  Receive Date: 20080107
  Receipt Date: 20071228
  Transmission Date: 20080703
  Serious: Yes (Death, Hospitalization)
  Sender: FDA-Public Use
  Company Number: B0495962A

PATIENT
  Age: 62 Year
  Sex: Male

DRUGS (5)
  1. ALKERAN [Suspect]
     Indication: MULTIPLE MYELOMA
     Route: 042
     Dates: start: 20020806
  2. VINCRISTINE SULFATE [Suspect]
     Indication: MULTIPLE MYELOMA
     Dosage: .4MGM2 SEE DOSAGE TEXT
     Route: 042
     Dates: start: 20010528, end: 20020131
  3. ADRIAMYCIN PFS [Suspect]
     Indication: MULTIPLE MYELOMA
     Dosage: 9MGM2 SEE DOSAGE TEXT
     Route: 042
     Dates: start: 20010528, end: 20020131
  4. DEXAMETHASONE TAB [Suspect]
     Indication: MULTIPLE MYELOMA
     Dosage: 40MGM2 SEE DOSAGE TEXT
     Route: 042
     Dates: start: 20010528, end: 20020131
  5. CYCLOPHOSPHAMIDE [Suspect]
     Indication: MULTIPLE MYELOMA
     Dosage: 2000MGM2 SEE DOSAGE TEXT
     Route: 042
     Dates: start: 20020528, end: 20020529

REACTIONS (2)
  - HAEMOPTYSIS [None]
  - HEPATIC NEOPLASM MALIGNANT [None]
